FAERS Safety Report 6828839-3 (Version None)
Quarter: 2010Q3

REPORT INFORMATION
  Report Type: 
  Country: None (occurrence: None)
  Receive Date: 20100709
  Receipt Date: 20070222
  Transmission Date: 20110219
  Serious: No
  Sender: FDA-Public Use
  Company Number: US-PFIZER INC-2007015517

PATIENT
  Sex: Female
  Weight: 68.04 kg

DRUGS (3)
  1. CHANTIX [Suspect]
     Indication: SMOKING CESSATION THERAPY
     Dates: start: 20070201, end: 20070201
  2. PREMARIN [Concomitant]
  3. SYNTHROID [Concomitant]

REACTIONS (6)
  - CHEST PAIN [None]
  - DISSOCIATION [None]
  - DYSPNOEA [None]
  - HYPERHIDROSIS [None]
  - PERIPHERAL COLDNESS [None]
  - SLEEP DISORDER [None]
